FAERS Safety Report 9240588 (Version 1)
Quarter: 2013Q1

REPORT INFORMATION
  Report Type: Spontaneous
  Country: US (occurrence: None)
  Receive Date: 20121120
  Receipt Date: 20121120
  Transmission Date: 20140127
  Serious: No
  Sender: FDA-Public Use
  Company Number: 1000038380

PATIENT
  Age: 62 Year
  Sex: Female

DRUGS (6)
  1. VIIBRYD [Suspect]
     Indication: DEPRESSION
     Route: 048
     Dates: start: 20120827, end: 20120902
  2. VIIBRYD [Suspect]
     Route: 048
     Dates: start: 20120903, end: 20120903
  3. LIPITOR (ATORVASTATIN CALCIUM) [Concomitant]
  4. BABY ASPIRIN (ACETYLSALICYLIC ACID) [Concomitant]
  5. DIURETIC NOS (DIURETIC NOS) [Concomitant]
  6. LEVOTHYROXINE (LEVOTHYROXINE SODIUM) [Concomitant]

REACTIONS (2)
  - Dizziness [None]
  - Nausea [None]
